FAERS Safety Report 8792041 (Version 1)
Quarter: 2012Q4

REPORT INFORMATION
  Report Type: 
  Country: FR (occurrence: FR)
  Receive Date: 20120918
  Receipt Date: 20120918
  Transmission Date: 20130627
  Serious: Yes (Life-Threatening, Hospitalization)
  Sender: FDA-Public Use
  Company Number: FR-JNJFOC-20120906255

PATIENT
  Age: 49 Year
  Sex: Male

DRUGS (4)
  1. HALDOL [Suspect]
     Indication: DEPRESSION
     Dosage: initiated several years ago
     Route: 048
     Dates: end: 20120823
  2. THERALENE [Suspect]
     Indication: DEPRESSION
     Route: 048
     Dates: end: 20120823
  3. TRANXENE [Concomitant]
     Indication: PRODUCT USED FOR UNKNOWN INDICATION
     Route: 065
  4. PARKINANE [Concomitant]
     Indication: PRODUCT USED FOR UNKNOWN INDICATION
     Route: 065

REACTIONS (8)
  - Neuroleptic malignant syndrome [Recovered/Resolved]
  - Dehydration [Recovered/Resolved]
  - Pyrexia [Recovered/Resolved]
  - Extrapyramidal disorder [Recovered/Resolved]
  - Rhabdomyolysis [Recovered/Resolved]
  - Hepatocellular injury [Recovered/Resolved]
  - Metabolic acidosis [Recovered/Resolved]
  - Leukocytosis [Recovered/Resolved]
